FAERS Safety Report 6677099-5 (Version None)
Quarter: 2010Q2

REPORT INFORMATION
  Report Type: 
  Country: None (occurrence: None)
  Receive Date: 20100401
  Receipt Date: 20090205
  Transmission Date: 20101027
  Serious: Yes (Hospitalization)
  Sender: FDA-Public Use
  Company Number: JHP200900020

PATIENT
  Age: 20 Year
  Sex: Male

DRUGS (1)
  1. DANTRIUM [Suspect]
     Indication: HYPERTHERMIA MALIGNANT
     Dosage: INTRAVENOUS
     Route: 042
     Dates: start: 20090205, end: 20090205

REACTIONS (1)
  - INFUSION SITE THROMBOSIS [None]
